FAERS Safety Report 12658809 (Version 1)
Quarter: 2016Q3

REPORT INFORMATION
  Report Type: Spontaneous
  Country: US (occurrence: None)
  Receive Date: 20160816
  Receipt Date: 20160816
  Transmission Date: 20161109
  Serious: Yes (Hospitalization)
  Sender: FDA-Public Use
  Company Number: None

PATIENT
  Age: 49 Year
  Sex: Female
  Weight: 68.7 kg

DRUGS (10)
  1. BEANO [Concomitant]
     Active Substance: ASPERGILLUS NIGER .ALPHA.-GALACTOSIDASE
  2. NEXIUM [Concomitant]
     Active Substance: ESOMEPRAZOLE MAGNESIUM
  3. SYMBICORT HFA [Concomitant]
  4. FEXOFENADINE [ALLEGRA] [Concomitant]
  5. FERROUS SULFATE. [Concomitant]
     Active Substance: FERROUS SULFATE
  6. LEVOTHYROXINE [LEVOTHROID] [Concomitant]
  7. TUMS [Concomitant]
     Active Substance: CALCIUM CARBONATE
  8. PROAIR HFA [Concomitant]
     Active Substance: ALBUTEROL SULFATE
  9. WOMAN^S ONE A DAY MULTIVITAMIN [Concomitant]
     Active Substance: MINERALS\VITAMINS
  10. PASIREOTIDE, 60MG NOVARTIS [Suspect]
     Active Substance: PASIREOTIDE
     Indication: POLYCYSTIC LIVER DISEASE
     Dosage: 60 MG EVERY 28 DAYS INTRAMUSCULAR
     Route: 030
     Dates: start: 20141020, end: 20160502

REACTIONS (1)
  - Liver transplant [None]

NARRATIVE: CASE EVENT DATE: 20160811
